FAERS Safety Report 7342451-1 (Version None)
Quarter: 2011Q1

REPORT INFORMATION
  Report Type: 
  Country: None (occurrence: None)
  Receive Date: 20110310
  Receipt Date: 20110307
  Transmission Date: 20110831
  Serious: No
  Sender: FDA-Public Use
  Company Number: US-PFIZER INC-2011038763

PATIENT
  Sex: Male
  Weight: 118 kg

DRUGS (4)
  1. XANAX [Concomitant]
     Indication: PANIC DISORDER
     Dosage: 0.5 MG, 3X/DAY
  2. EFFEXOR XR [Suspect]
     Indication: DEPRESSION
     Dosage: 225 MG, 1X/DAY
     Route: 048
     Dates: start: 20060101
  3. EFFEXOR XR [Suspect]
     Indication: PANIC DISORDER
  4. ZYPREXA [Concomitant]
     Dosage: 5 MG, UNK

REACTIONS (3)
  - HYPERHIDROSIS [None]
  - GAIT DISTURBANCE [None]
  - GASTROINTESTINAL VIRAL INFECTION [None]
